FAERS Safety Report 26017699 (Version 1)
Quarter: 2025Q4

REPORT INFORMATION
  Report Type: Spontaneous
  Country: MX (occurrence: MX)
  Receive Date: 20251110
  Receipt Date: 20251110
  Transmission Date: 20260117
  Serious: Yes (Other)
  Sender: SANDOZ
  Company Number: MX-002147023-NVSC2025MX171851

PATIENT
  Sex: Male
  Weight: 76 kg

DRUGS (3)
  1. ATORVASTATIN [Suspect]
     Active Substance: ATORVASTATIN
     Indication: Cardiovascular disorder
     Dosage: 10 MG, QD
     Route: 048
     Dates: start: 2024
  2. EXFORGE [Suspect]
     Active Substance: AMLODIPINE BESYLATE\VALSARTAN
     Dosage: 1 DOSAGE FORM, Q12H
     Route: 048
  3. EXFORGE [Suspect]
     Active Substance: AMLODIPINE BESYLATE\VALSARTAN
     Indication: Hypertension
     Dosage: 320/10 MG, QD
     Route: 048

REACTIONS (5)
  - Infarction [Recovered/Resolved]
  - Infarction [Recovered/Resolved]
  - Ischaemic cardiomyopathy [Recovering/Resolving]
  - Prostatomegaly [Recovering/Resolving]
  - Off label use [Unknown]

NARRATIVE: CASE EVENT DATE: 20240101
